FAERS Safety Report 10257565 (Version 4)
Quarter: 2014Q3

REPORT INFORMATION
  Report Type: Report from Study
  Country: JP (occurrence: None)
  Receive Date: 20140620
  Receipt Date: 20140729
  Transmission Date: 20150326
  Serious: Yes (Death, Life-Threatening, Other)
  Sender: FDA-Public Use
  Company Number: 2014MPI00705

PATIENT
  Age: 63 Year
  Sex: Female
  Weight: 35.3 kg

DRUGS (3)
  1. ADCETRIS [Suspect]
     Active Substance: BRENTUXIMAB VEDOTIN
     Indication: HODGKIN^S DISEASE
     Route: 041
     Dates: start: 20140514, end: 20140514
  2. ACETAMINOPHEN  (ACETAMINOPHEN) [Concomitant]
     Active Substance: ACETAMINOPHEN
  3. ANTIHISTAMINES [Concomitant]
     Active Substance: ANTIHISTAMINES NOS

REACTIONS (6)
  - Death [None]
  - Lymphopenia [None]
  - Pneumonia [None]
  - Thrombocytopenia [None]
  - Cardiac failure [None]
  - Neutropenia [None]

NARRATIVE: CASE EVENT DATE: 20140526
